FAERS Safety Report 18585853 (Version 1)
Quarter: 2020Q4

REPORT INFORMATION
  Report Type: Spontaneous
  Country: US (occurrence: US)
  Receive Date: 20201204
  Receipt Date: 20201204
  Transmission Date: 20210114
  Serious: Yes (Hospitalization)
  Sender: FDA-Public Use
  Company Number: None

PATIENT
  Sex: Female

DRUGS (19)
  1. LOSARTAN POT [Concomitant]
     Active Substance: LOSARTAN POTASSIUM
  2. BYSTOLIC [Concomitant]
     Active Substance: NEBIVOLOL HYDROCHLORIDE
  3. AMITRIPTYLIN [Concomitant]
     Active Substance: AMITRIPTYLINE
  4. DULOXETINE. [Concomitant]
     Active Substance: DULOXETINE
  5. HYDROCO/APAP [Concomitant]
     Active Substance: ACETAMINOPHEN\HYDROCODONE
  6. LATUDA [Concomitant]
     Active Substance: LURASIDONE HYDROCHLORIDE
  7. METFORMIN [Concomitant]
     Active Substance: METFORMIN HYDROCHLORIDE
  8. PILOCARPINE. [Concomitant]
     Active Substance: PILOCARPINE
  9. DICLOFENAC GEL [Concomitant]
     Active Substance: DICLOFENAC
  10. FOLIC ACID. [Concomitant]
     Active Substance: FOLIC ACID
  11. NABUMETONE. [Concomitant]
     Active Substance: NABUMETONE
  12. CIMZIA [Suspect]
     Active Substance: CERTOLIZUMAB PEGOL
     Indication: POLYARTHRITIS
     Dosage: ?          OTHER DOSE:2 SYR;OTHER FREQUENCY:SECTION B5;?
     Route: 058
     Dates: start: 20201001
  13. AZITHROMYCIN ANHYDROUS. [Concomitant]
     Active Substance: AZITHROMYCIN ANHYDROUS
  14. FAMOTIDINE. [Concomitant]
     Active Substance: FAMOTIDINE
  15. HYDROXYCHLOR [Concomitant]
     Active Substance: HYDROXYCHLOROQUINE
  16. PANTOPRAZOLE [Concomitant]
     Active Substance: PANTOPRAZOLE
  17. PREGABALIN. [Concomitant]
     Active Substance: PREGABALIN
  18. IBUPROFEN. [Concomitant]
     Active Substance: IBUPROFEN
  19. OXTELLAR XR [Concomitant]
     Active Substance: OXCARBAZEPINE

REACTIONS (4)
  - Therapy interrupted [None]
  - Gallbladder operation [None]
  - Condition aggravated [None]
  - Postoperative wound infection [None]
